FAERS Safety Report 9090190 (Version 1)
Quarter: 2013Q1

REPORT INFORMATION
  Report Type: Report from Study
  Country: US (occurrence: US)
  Receive Date: 20130202
  Receipt Date: 20130202
  Transmission Date: 20140127
  Serious: Yes (Other)
  Sender: FDA-Public Use
  Company Number: US-US-EMD SERONO, INC.-7190514

PATIENT
  Sex: Female
  Weight: 109 kg

DRUGS (1)
  1. REBIF [Suspect]
     Indication: MULTIPLE SCLEROSIS
     Route: 058
     Dates: start: 20060224

REACTIONS (7)
  - Uterine enlargement [Recovered/Resolved]
  - Menorrhagia [Recovered/Resolved]
  - Osteoarthritis [Not Recovered/Not Resolved]
  - Intervertebral disc protrusion [Not Recovered/Not Resolved]
  - Hot flush [Not Recovered/Not Resolved]
  - Injection site erythema [Recovering/Resolving]
  - Injection site swelling [Recovering/Resolving]
